FAERS Safety Report 7429898-X (Version None)
Quarter: 2011Q2

REPORT INFORMATION
  Report Type: 
  Country: None (occurrence: None)
  Receive Date: 20110421
  Receipt Date: 20110413
  Transmission Date: 20111010
  Serious: Yes (Other)
  Sender: FDA-Public Use
  Company Number: US-ASTRAZENECA-2011SE21518

PATIENT
  Age: 59 Year
  Sex: Female
  Weight: 130.2 kg

DRUGS (7)
  1. TRAZODONE HCL [Concomitant]
  2. SEROQUEL [Suspect]
     Indication: DEPRESSION
     Route: 048
     Dates: start: 20100101, end: 20110201
  3. CITALOPRAM HYDROBROMIDE [Concomitant]
     Dates: end: 20110401
  4. ABILIFY [Concomitant]
     Dates: end: 20110201
  5. SEROQUEL [Suspect]
     Indication: SCHIZOPHRENIA, PARANOID TYPE
     Route: 048
     Dates: start: 20100101, end: 20110201
  6. SEROQUEL [Suspect]
     Indication: BIPOLAR DISORDER
     Route: 048
     Dates: start: 20100101, end: 20110201
  7. LASIX [Concomitant]

REACTIONS (14)
  - FOOD CRAVING [None]
  - PHYSICAL DISABILITY [None]
  - IMPAIRED WORK ABILITY [None]
  - WEIGHT INCREASED [None]
  - DRY MOUTH [None]
  - DYSPNOEA [None]
  - BLOOD PRESSURE INADEQUATELY CONTROLLED [None]
  - DIABETES MELLITUS [None]
  - BLOOD PRESSURE INCREASED [None]
  - ARTHRALGIA [None]
  - COMMUNICATION DISORDER [None]
  - DRY SKIN [None]
  - GAIT DISTURBANCE [None]
  - SKIN EXFOLIATION [None]
